FAERS Safety Report 9666759 (Version 1)
Quarter: 2013Q4

REPORT INFORMATION
  Report Type: Spontaneous
  Country: US (occurrence: US)
  Receive Date: 20131104
  Receipt Date: 20131104
  Transmission Date: 20140711
  Serious: No
  Sender: FDA-Public Use
  Company Number: US-BIOGENIDEC-2013BI087490

PATIENT
  Age: 55 Year
  Sex: Female
  Weight: 89 kg

DRUGS (9)
  1. TECFIDERA [Suspect]
     Indication: PRODUCT USED FOR UNKNOWN INDICATION
     Route: 048
     Dates: start: 20130820
  2. TECFIDERA [Suspect]
     Indication: PRODUCT USED FOR UNKNOWN INDICATION
     Route: 048
  3. CRESTOR [Concomitant]
  4. VITAMIN E [Concomitant]
  5. CALCIUM+D [Concomitant]
  6. KRILL OIL [Concomitant]
  7. ZOLOFT [Concomitant]
  8. VITAMIN D3 [Concomitant]
  9. ZESTRIL [Concomitant]

REACTIONS (1)
  - Diarrhoea [Unknown]
